FAERS Safety Report 13704530 (Version 1)
Quarter: 2017Q2

REPORT INFORMATION
  Report Type: Spontaneous
  Country: US (occurrence: US)
  Receive Date: 20170629
  Receipt Date: 20170629
  Transmission Date: 20170830
  Serious: No
  Sender: FDA-Public Use
  Company Number: None

PATIENT
  Age: 32 Year
  Sex: Female
  Weight: 90 kg

DRUGS (1)
  1. NUVARING [Suspect]
     Active Substance: ETHINYL ESTRADIOL\ETONOGESTREL
     Indication: CONTRACEPTION
     Dosage: OTHER STRENGTH:MG;QUANTITY:1 RING;OTHER FREQUENCY:LEAVE IN FOR 3 WEE;?
     Route: 067
     Dates: start: 20170601, end: 20170621

REACTIONS (1)
  - Fungal infection [None]

NARRATIVE: CASE EVENT DATE: 20170620
